FAERS Safety Report 6436980-2 (Version None)
Quarter: 2009Q4

REPORT INFORMATION
  Report Type: 
  Country: None (occurrence: None)
  Receive Date: 20091112
  Receipt Date: 20091028
  Transmission Date: 20100525
  Serious: Yes (Hospitalization)
  Sender: FDA-Public Use
  Company Number: JP-BIOGENIDEC-2009BI022588

PATIENT
  Age: 59 Year
  Sex: Female

DRUGS (13)
  1. AVONEX [Suspect]
     Indication: RELAPSING-REMITTING MULTIPLE SCLEROSIS
     Route: 030
     Dates: start: 20080703, end: 20080905
  2. AVONEX [Suspect]
     Route: 030
     Dates: start: 20080922
  3. PREDONINE [Concomitant]
     Dates: start: 19960401
  4. ALFAROL [Concomitant]
     Dates: start: 20080703
  5. ASPARA POTASSIUM [Concomitant]
     Dates: start: 20080703
  6. GASTER D [Concomitant]
     Dates: start: 20080703
  7. LIORESAL [Concomitant]
     Dates: start: 20080703
  8. MAGMITT [Concomitant]
     Dates: start: 20080703
  9. AMLODIPINE [Concomitant]
     Dates: start: 20080703
  10. BLOPRESS [Concomitant]
     Dates: start: 20080703, end: 20090210
  11. FOSAMAC [Concomitant]
     Dates: start: 20080703
  12. SHAKUYAKU-KANZO-TO [Concomitant]
     Dates: start: 20080703
  13. BAKTAR [Concomitant]
     Dates: start: 20080703

REACTIONS (2)
  - MULTIPLE SCLEROSIS RELAPSE [None]
  - PNEUMONIA [None]
